FAERS Safety Report 12944455 (Version 1)
Quarter: 2016Q4

REPORT INFORMATION
  Report Type: Spontaneous
  Country: US (occurrence: US)
  Receive Date: 20161115
  Receipt Date: 20161115
  Transmission Date: 20170207
  Serious: Yes (Hospitalization)
  Sender: FDA-Public Use
  Company Number: None

PATIENT
  Age: 1 Year
  Sex: Female
  Weight: 11.2 kg

DRUGS (6)
  1. VINCRISTINE SULFATE. [Suspect]
     Active Substance: VINCRISTINE SULFATE
     Dates: end: 20161011
  2. CYTARABINE. [Suspect]
     Active Substance: CYTARABINE
     Dates: end: 20161001
  3. MERCAPTOPURINE. [Suspect]
     Active Substance: MERCAPTOPURINE
     Dates: end: 20161004
  4. ONCASPAR [Suspect]
     Active Substance: PEGASPARGASE
     Dates: end: 20161004
  5. METHOREXATE [Suspect]
     Active Substance: METHOTREXATE SODIUM
     Dates: end: 20161011
  6. CYCLOSPHOSPHAMIDE [Suspect]
     Active Substance: CYCLOPHOSPHAMIDE
     Dates: end: 20160922

REACTIONS (4)
  - Respiratory disorder [None]
  - Febrile neutropenia [None]
  - Toxicity to various agents [None]
  - Seizure [None]

NARRATIVE: CASE EVENT DATE: 20161007
